FAERS Safety Report 6255051-1 (Version None)
Quarter: 2009Q3

REPORT INFORMATION
  Report Type: 
  Country: None (occurrence: None)
  Receive Date: 20090702
  Receipt Date: 20090623
  Transmission Date: 20100115
  Serious: Yes (Other)
  Sender: FDA-Public Use
  Company Number: JP-PFIZER INC-2009232346

PATIENT
  Age: 51 Year

DRUGS (1)
  1. AZULFIDINE [Suspect]
     Indication: RHEUMATOID ARTHRITIS
     Dosage: UNK MG, UNK
     Route: 048
     Dates: start: 20090619, end: 20090620

REACTIONS (2)
  - OEDEMA [None]
  - PYREXIA [None]
